FAERS Safety Report 8525568-5 (Version None)
Quarter: 2012Q3

REPORT INFORMATION
  Report Type: 
  Country: None (occurrence: None)
  Receive Date: 20120720
  Receipt Date: 20120711
  Transmission Date: 20120928
  Serious: Yes (Other)
  Sender: FDA-Public Use
  Company Number: US-ASTRAZENECA-2011SE45804

PATIENT
  Age: 74 Year
  Sex: Female

DRUGS (2)
  1. ARIMIDEX [Suspect]
     Indication: BREAST CANCER
     Route: 048
  2. NEXIUM [Suspect]
     Route: 048

REACTIONS (4)
  - MALAISE [None]
  - FIBROMYALGIA [None]
  - CHRONIC OBSTRUCTIVE PULMONARY DISEASE [None]
  - BREAST CANCER [None]
